FAERS Safety Report 8304635-5 (Version None)
Quarter: 2012Q2

REPORT INFORMATION
  Report Type: 
  Country: None (occurrence: None)
  Receive Date: 20120423
  Receipt Date: 20111107
  Transmission Date: 20120825
  Serious: Yes (Death, Hospitalization)
  Sender: FDA-Public Use
  Company Number: US-ROCHE-1011641

PATIENT
  Sex: Female

DRUGS (5)
  1. CARBOPLATIN [Suspect]
     Indication: BREAST CANCER METASTATIC
     Dates: start: 20051021
  2. IXABEPILONE [Suspect]
     Indication: BREAST CANCER METASTATIC
     Dates: start: 20051021
  3. CARBOPLATIN [Suspect]
     Dates: start: 20051028
  4. HERCEPTIN [Suspect]
     Indication: BREAST CANCER METASTATIC
     Route: 042
     Dates: start: 20051021
  5. HERCEPTIN [Suspect]
     Route: 042

REACTIONS (1)
  - FEBRILE NEUTROPENIA [None]
